FAERS Safety Report 9795242 (Version 3)
Quarter: 2014Q1

REPORT INFORMATION
  Report Type: Spontaneous
  Country: US (occurrence: US)
  Receive Date: 20140103
  Receipt Date: 20140305
  Transmission Date: 20141002
  Serious: No
  Sender: FDA-Public Use
  Company Number: US-BIOGENIDEC-2014BI000330

PATIENT
  Age: 48 Year
  Sex: Female

DRUGS (13)
  1. TYSABRI [Suspect]
     Indication: MULTIPLE SCLEROSIS
     Route: 042
     Dates: start: 20121108
  2. TECFIDERA [Concomitant]
     Indication: MULTIPLE SCLEROSIS
  3. PAROXETINE [Concomitant]
  4. PANTOPRAZOLE [Concomitant]
  5. MIRTAZAPINE [Concomitant]
  6. MULTIVITAMIN [Concomitant]
  7. OMEGA 3 [Concomitant]
  8. COLACE [Concomitant]
  9. ATIVAN [Concomitant]
  10. VICODIN [Concomitant]
  11. LYRICA [Concomitant]
  12. ALLEGRA [Concomitant]
  13. MIDOL [Concomitant]

REACTIONS (4)
  - Hypersensitivity [Recovered/Resolved]
  - Abdominal pain [Unknown]
  - Nausea [Unknown]
  - Hepatic enzyme increased [Unknown]
